FAERS Safety Report 22217299 (Version 4)
Quarter: 2023Q2

REPORT INFORMATION
  Report Type: Report from Study
  Country: CA (occurrence: CA)
  Receive Date: 20230417
  Receipt Date: 20230426
  Transmission Date: 20230721
  Serious: Yes (Other)
  Sender: FDA-Public Use
  Company Number: CA-MYLANLABS-2023M1039338

PATIENT
  Age: 50 Year
  Sex: Female
  Weight: 59 kg

DRUGS (3)
  1. HULIO [Suspect]
     Active Substance: ADALIMUMAB-FKJP
     Indication: Rheumatoid arthritis
     Dosage: 40 MILLIGRAM, BIWEEKLY
     Route: 058
     Dates: start: 20230410
  2. SULFASALAZINE [Concomitant]
     Active Substance: SULFASALAZINE
     Dosage: UNK
     Route: 065
  3. FLURBIPROFEN [Concomitant]
     Active Substance: FLURBIPROFEN
     Dosage: UNK
     Route: 065

REACTIONS (15)
  - Hallucination [Recovered/Resolved]
  - Mental impairment [Unknown]
  - Near death experience [Unknown]
  - Nightmare [Unknown]
  - Taste disorder [Unknown]
  - Malaise [Unknown]
  - Pain of skin [Unknown]
  - Confusional state [Unknown]
  - Disorientation [Unknown]
  - Dizziness [Unknown]
  - Rash [Unknown]
  - Headache [Unknown]
  - Tremor [Unknown]
  - Adverse drug reaction [Unknown]
  - Erythema [Unknown]

NARRATIVE: CASE EVENT DATE: 20230410
